FAERS Safety Report 4890917-6 (Version None)
Quarter: 2006Q1

REPORT INFORMATION
  Report Type: 
  Country: None (occurrence: None)
  Receive Date: 20060123
  Receipt Date: 20060119
  Transmission Date: 20060701
  Serious: Yes (Congenital Anomaly)
  Sender: FDA-Public Use
  Company Number: 006447

PATIENT
  Age: 12 Week

DRUGS (3)
  1. DIDANOSINE [Suspect]
     Indication: INFECTION
     Dosage: 400 MG, QD, ORAL
     Route: 048
  2. NELFINAVIR (NELFINAVIR) [Suspect]
     Indication: INFECTION
     Dosage: 2500 MG, QD, ORAL
     Route: 048
  3. ABACAVIR (ABACAVIR) [Suspect]
     Indication: INFECTION
     Dosage: 600 MG, QD, ORAL
     Route: 048

REACTIONS (2)
  - DRUG EXPOSURE DURING PREGNANCY [None]
  - TRISOMY 21 [None]
